FAERS Safety Report 16207045 (Version 4)
Quarter: 2022Q1

REPORT INFORMATION
  Report Type: Spontaneous
  Country: JP (occurrence: JP)
  Receive Date: 20190417
  Receipt Date: 20220331
  Transmission Date: 20220423
  Serious: Yes (Hospitalization, Other)
  Sender: FDA-Public Use
  Company Number: JP-JNJFOC-20190418254

PATIENT
  Age: 71 Year
  Sex: Female
  Weight: 40.5 kg

DRUGS (14)
  1. SIMPONI [Suspect]
     Active Substance: GOLIMUMAB
     Indication: Colitis ulcerative
     Route: 058
     Dates: start: 20171017, end: 20180412
  2. ISONIAZID [Suspect]
     Active Substance: ISONIAZID
     Indication: Tuberculous pleurisy
     Route: 065
  3. RIFAMPIN [Suspect]
     Active Substance: RIFAMPIN
     Indication: Tuberculous pleurisy
     Route: 065
  4. ETHAMBUTOL [Suspect]
     Active Substance: ETHAMBUTOL HYDROCHLORIDE
     Indication: Tuberculous pleurisy
     Route: 065
  5. PYRAZINAMIDE [Suspect]
     Active Substance: PYRAZINAMIDE
     Indication: Tuberculous pleurisy
     Route: 065
  6. PREDNISOLONE [Concomitant]
     Active Substance: PREDNISOLONE
     Indication: Colitis ulcerative
     Route: 065
     Dates: end: 2011
  7. PREDNISOLONE [Concomitant]
     Active Substance: PREDNISOLONE
     Route: 065
     Dates: start: 201712
  8. PREDNISOLONE [Concomitant]
     Active Substance: PREDNISOLONE
     Route: 065
     Dates: end: 20180208
  9. PREDNISOLONE [Concomitant]
     Active Substance: PREDNISOLONE
     Route: 065
  10. PREDNISOLONE [Concomitant]
     Active Substance: PREDNISOLONE
     Route: 065
  11. LIALDA [Concomitant]
     Active Substance: MESALAMINE
     Route: 048
  12. BIO-THREE [Concomitant]
     Active Substance: HERBALS
     Dosage: 6
     Route: 048
  13. RABEPRAZOLE SODIUM [Concomitant]
     Active Substance: RABEPRAZOLE SODIUM
     Route: 048
  14. MINODRONIC ACID [Concomitant]
     Active Substance: MINODRONIC ACID
     Route: 048

REACTIONS (2)
  - Paradoxical drug reaction [Recovered/Resolved]
  - Tuberculous pleurisy [Recovered/Resolved]

NARRATIVE: CASE EVENT DATE: 20180322
